FAERS Safety Report 11617911 (Version 3)
Quarter: 2016Q1

REPORT INFORMATION
  Report Type: Spontaneous
  Country: US (occurrence: US)
  Receive Date: 20151009
  Receipt Date: 20160219
  Transmission Date: 20160525
  Serious: Yes (Death, Life-Threatening, Hospitalization, Disabling, Other)
  Sender: FDA-Public Use
  Company Number: US-KADMON PHARMACEUTICALS, LLC-KAD201510-003506

PATIENT
  Age: 64 Year
  Sex: Female
  Weight: 67.4 kg

DRUGS (14)
  1. ZANTAC [Concomitant]
     Active Substance: RANITIDINE HYDROCHLORIDE
     Dosage: TABLET
     Route: 048
     Dates: start: 20150518
  2. RENVELA [Concomitant]
     Active Substance: SEVELAMER CARBONATE
     Indication: BLOOD PHOSPHORUS INCREASED
     Dosage: TABLET
     Route: 048
     Dates: start: 20150518
  3. TOPROL XL [Concomitant]
     Active Substance: METOPROLOL SUCCINATE
     Dates: start: 20141208
  4. CIPROFLOXACIN. [Concomitant]
     Active Substance: CIPROFLOXACIN
     Indication: CYSTITIS
     Dates: start: 20150518
  5. LISINOPRIL. [Concomitant]
     Active Substance: LISINOPRIL
     Dates: start: 20150121
  6. CIPROFLOXACIN. [Concomitant]
     Active Substance: CIPROFLOXACIN
     Indication: URINARY TRACT INFECTION
  7. LASIX [Concomitant]
     Active Substance: FUROSEMIDE
     Dosage: TABLET
     Route: 048
     Dates: start: 20150508
  8. VIEKIRA PAK [Suspect]
     Active Substance: DASABUVIR\OMBITASVIR\PARITAPREVIR\RITONAVIR
     Indication: HEPATITIS C
     Dosage: TABLET
     Route: 048
     Dates: start: 20150522, end: 20150602
  9. LISINOPRIL. [Concomitant]
     Active Substance: LISINOPRIL
     Route: 048
     Dates: start: 20150508
  10. COLCHICINE 0.6 MG TABLET [Concomitant]
     Indication: URINARY TRACT INFECTION
  11. RIBAVIRIN. [Suspect]
     Active Substance: RIBAVIRIN
     Indication: HEPATITIS C
     Dosage: TABLET
     Route: 048
     Dates: start: 20150522
  12. NIFEDIPINE ER [Concomitant]
     Active Substance: NIFEDIPINE
     Dosage: TABLET
     Route: 048
     Dates: start: 20150121
  13. COLCHICINE 0.6 MG TABLET [Concomitant]
     Indication: GOUT
     Route: 048
     Dates: start: 20150518
  14. SODIUM BICARBONATE. [Concomitant]
     Active Substance: SODIUM BICARBONATE
     Route: 048
     Dates: start: 20150501

REACTIONS (18)
  - Fluid retention [Unknown]
  - Electrocardiogram QRS complex prolonged [Unknown]
  - Cardiogenic shock [Unknown]
  - Aspartate aminotransferase increased [Unknown]
  - Respiratory failure [Unknown]
  - Lactic acidosis [Fatal]
  - Electrolyte imbalance [Fatal]
  - Asthenia [Unknown]
  - Dizziness [Unknown]
  - Lethargy [Unknown]
  - Pleural effusion [Unknown]
  - Sepsis [Fatal]
  - Nodal rhythm [Unknown]
  - Ascites [Unknown]
  - Hypocalcaemia [Unknown]
  - Decreased appetite [Unknown]
  - Shock [Unknown]
  - Blood creatinine increased [Unknown]

NARRATIVE: CASE EVENT DATE: 2015
